FAERS Safety Report 20133403 (Version 1)
Quarter: 2021Q4

REPORT INFORMATION
  Report Type: Report from Study
  Country: EG (occurrence: EG)
  Receive Date: 20211201
  Receipt Date: 20211201
  Transmission Date: 20220304
  Serious: Yes (Other)
  Sender: FDA-Public Use
  Company Number: EG-NOVARTISPH-NVSC2021EG269491

PATIENT
  Sex: Male

DRUGS (1)
  1. ENTRESTO [Suspect]
     Active Substance: SACUBITRIL\VALSARTAN
     Indication: Cardiac failure
     Dosage: 1 DOSAGE FORM, BID
     Route: 048
     Dates: start: 2018, end: 202109

REACTIONS (4)
  - Flank pain [Recovering/Resolving]
  - Oedema peripheral [Recovering/Resolving]
  - Blood creatinine increased [Recovering/Resolving]
  - Ejection fraction abnormal [Not Recovered/Not Resolved]
